FAERS Safety Report 16200476 (Version 3)
Quarter: 2019Q2

REPORT INFORMATION
  Report Type: Spontaneous
  Country: CA (occurrence: CA)
  Receive Date: 20190416
  Receipt Date: 20190626
  Transmission Date: 20190711
  Serious: Yes (Other)
  Sender: FDA-Public Use
  Company Number: CA-CELLTRION INC.-2018CA021857

PATIENT

DRUGS (26)
  1. INFLECTRA [Suspect]
     Active Substance: INFLIXIMAB-DYYB
     Dosage: 1000 MG, EVERY 8 WEEKS
     Route: 042
     Dates: start: 20181227
  2. PURINETHOL [Concomitant]
     Active Substance: MERCAPTOPURINE
     Dosage: 2 DF(TABLETS), 1X/DAY (HS)
     Route: 048
     Dates: start: 201804
  3. JAMP OLMESARTAN [Concomitant]
     Dosage: 1 DF(TABLET), 1X/DAY A DAY AT BREAKFAST
     Route: 048
  4. SALOFALK [Concomitant]
     Dosage: UNK
     Route: 065
     Dates: start: 20190402
  5. INFLECTRA [Suspect]
     Active Substance: INFLIXIMAB-DYYB
     Dosage: 500 MG, 0,2,6 WEEKS, THEN EVERY 8 WEEKS)
     Route: 042
     Dates: start: 20181112
  6. PREDNISONE. [Concomitant]
     Active Substance: PREDNISONE
     Dosage: 8 DF(TABLETS)
     Route: 048
     Dates: start: 20180725, end: 20180807
  7. EURO SULFATE FERREUX [Concomitant]
     Dosage: 1 DF (TABLET), ONCE A DAY AT LUNCH
     Route: 048
  8. JAMP DICYCLOMINE HCL [Concomitant]
     Dosage: 1 DF(TABLET), 4X/DAY
  9. INFLECTRA [Suspect]
     Active Substance: INFLIXIMAB-DYYB
     Dosage: 500 MG, UNK
     Route: 042
     Dates: start: 20181015
  10. PREDNISONE. [Concomitant]
     Active Substance: PREDNISONE
     Dosage: THEN TAPERING 1 TABLET PER WEEK UNTIL THE END
     Route: 048
  11. AMITRIPTYLINE [Concomitant]
     Active Substance: AMITRIPTYLINE
     Indication: COLITIS ULCERATIVE
     Dosage: 1 DF (TABLET), 1X/DAY BEFORE BEDTIME
     Route: 048
  12. DEXILANT [Concomitant]
     Active Substance: DEXLANSOPRAZOLE
     Dosage: 1 DF (CAPSULE), ONCE A DAY AT BREAKFAST
     Route: 048
  13. PMS-HYDROMORPHONE [Concomitant]
     Active Substance: HYDROMORPHONE HYDROCHLORIDE
     Indication: PAIN
     Dosage: 1 DF(TABLET), EVERY 4 HOURS AS NEEDED
     Route: 048
  14. SALVENT [Concomitant]
     Active Substance: ALBUTEROL
     Dosage: 100 UG, 4X/DAY FOR SEVEN DAYS
     Route: 055
  15. MEZAVANT [Concomitant]
     Active Substance: MESALAMINE
     Dosage: UNK
     Route: 065
     Dates: start: 2016
  16. CALCIUM + VITAMIN D [Concomitant]
     Active Substance: CALCIUM\VITAMIN D
     Dosage: 1 DF (TABLET), 2X/DAY (500MG-400 U)
     Route: 048
     Dates: start: 20180801
  17. CORTISONE [Concomitant]
     Active Substance: CORTISONE\HYDROCORTISONE
     Dosage: UNK
  18. XELJANZ [Concomitant]
     Active Substance: TOFACITINIB CITRATE
     Indication: COLITIS ULCERATIVE
     Dosage: 10 MG, TWICE A DAY
     Route: 048
     Dates: start: 20190220, end: 201904
  19. INFLECTRA [Suspect]
     Active Substance: INFLIXIMAB-DYYB
     Indication: COLITIS ULCERATIVE
     Dosage: 500 MG, 0,2,6 WEEKS, THEN EVERY 8 WEEKS
     Route: 042
  20. INFLECTRA [Suspect]
     Active Substance: INFLIXIMAB-DYYB
     Dosage: 500 MG, 0,2,6 WEEKS, THEN EVERY 8 WEEKS
     Route: 042
     Dates: start: 20181001
  21. QUETIAPINE XR [Concomitant]
     Active Substance: QUETIAPINE
     Dosage: 1 DF(TABLET), ONCE A DAY AT DINNER
     Route: 048
  22. SYNTHROID [Concomitant]
     Active Substance: LEVOTHYROXINE SODIUM
     Dosage: 1 DF(TABLET), 1X/DAY IN THE MORNING
     Route: 048
  23. PREDNISONE. [Concomitant]
     Active Substance: PREDNISONE
     Dosage: UNK
     Route: 065
     Dates: start: 201804
  24. SERTRALINE [Concomitant]
     Active Substance: SERTRALINE HYDROCHLORIDE
     Dosage: 1 DF(CAPSULE), 1X/DAY AT DINNER
     Route: 048
  25. SERTRALINE [Concomitant]
     Active Substance: SERTRALINE HYDROCHLORIDE
     Dosage: 1 DF(CAPSULE), 1X/DAY AT DINNER
     Route: 048
  26. CALCIUM + VITAMIN D [Concomitant]
     Active Substance: CALCIUM\VITAMIN D
     Dosage: 1 DF (TABLET), 2X/DAY (500MG-1000 U)
     Route: 048
     Dates: start: 20180926

REACTIONS (4)
  - Condition aggravated [Not Recovered/Not Resolved]
  - Off label use [Unknown]
  - Treatment failure [Unknown]
  - Blood pressure fluctuation [Unknown]

NARRATIVE: CASE EVENT DATE: 20181015
